FAERS Safety Report 12855240 (Version 2)
Quarter: 2016Q4

REPORT INFORMATION
  Report Type: Spontaneous
  Country: US (occurrence: US)
  Receive Date: 20161017
  Receipt Date: 20161021
  Transmission Date: 20170207
  Serious: No
  Sender: FDA-Public Use
  Company Number: US-SHIRE-US201614755

PATIENT
  Age: 40 Year
  Sex: Male
  Weight: 64.85 kg

DRUGS (3)
  1. LORATADINE. [Concomitant]
     Active Substance: LORATADINE
     Indication: MECHANICAL URTICARIA
     Dosage: 1 DF, 1X/DAY:QD
     Route: 048
     Dates: start: 2011
  2. LEVOTHYROXINE. [Concomitant]
     Active Substance: LEVOTHYROXINE
     Indication: HYPOTHYROIDISM
     Dosage: 0.75 ?G, 1X/DAY:QD
     Route: 048
     Dates: start: 1996
  3. XIIDRA [Suspect]
     Active Substance: LIFITEGRAST
     Indication: DRY EYE
     Dosage: 2 GTT (1 GTT BOTH EYES), 2X/DAY:BID
     Route: 047
     Dates: start: 20161003, end: 20161006

REACTIONS (1)
  - Dermatitis contact [Recovering/Resolving]

NARRATIVE: CASE EVENT DATE: 20161005
